FAERS Safety Report 10023285 (Version 1)
Quarter: 2014Q1

REPORT INFORMATION
  Report Type: Spontaneous
  Country: US (occurrence: US)
  Receive Date: 20140320
  Receipt Date: 20140320
  Transmission Date: 20141002
  Serious: No
  Sender: FDA-Public Use
  Company Number: US-BIOGENIDEC-2014BI023761

PATIENT
  Age: 70 Year
  Sex: Female

DRUGS (17)
  1. AVONEX [Suspect]
     Indication: RELAPSING-REMITTING MULTIPLE SCLEROSIS
     Route: 030
     Dates: start: 20140114
  2. AVONEX [Suspect]
     Indication: RELAPSING-REMITTING MULTIPLE SCLEROSIS
     Route: 030
     Dates: start: 20140128
  3. AVONEX [Suspect]
     Indication: RELAPSING-REMITTING MULTIPLE SCLEROSIS
     Route: 030
     Dates: start: 20140211
  4. VICODIN [Concomitant]
     Indication: HEADACHE
     Route: 048
  5. VICODIN [Concomitant]
     Indication: NECK PAIN
     Route: 048
  6. VICODIN [Concomitant]
     Indication: BACK PAIN
     Route: 048
  7. SOMA [Concomitant]
     Indication: NECK PAIN
     Route: 048
  8. SOMA [Concomitant]
     Indication: BACK PAIN
     Route: 048
  9. AMBIEN [Concomitant]
     Indication: INSOMNIA
     Route: 048
  10. LIPITOR [Concomitant]
     Indication: HYPERLIPIDAEMIA
     Route: 048
  11. SYNTHROID [Concomitant]
     Indication: HORMONE REPLACEMENT THERAPY
     Route: 048
  12. ESTROGEN [Concomitant]
     Indication: BONE DENSITY DECREASED
     Route: 048
  13. MULTIVITAMINS [Concomitant]
     Indication: ROUTINE HEALTH MAINTENANCE
     Route: 048
  14. FUROSEMIDE [Concomitant]
     Indication: JOINT SWELLING
     Route: 048
  15. SPIROLADACTONE [Concomitant]
     Indication: BLOOD PRESSURE
     Route: 048
  16. NIFEDICAL [Concomitant]
     Indication: BLOOD PRESSURE
     Route: 048
  17. DIVIGEL [Concomitant]
     Indication: MENOPAUSAL SYMPTOMS
     Route: 061

REACTIONS (4)
  - Abdominal discomfort [Recovered/Resolved]
  - Psychomotor hyperactivity [Recovered/Resolved]
  - Insomnia [Recovered/Resolved]
  - Headache [Recovered/Resolved]
